FAERS Safety Report 9604436 (Version 1)
Quarter: 2013Q4

REPORT INFORMATION
  Report Type: Spontaneous
  Country: GB (occurrence: GB)
  Receive Date: 20131008
  Receipt Date: 20131008
  Transmission Date: 20140711
  Serious: Yes (Death)
  Sender: FDA-Public Use
  Company Number: GB-ELI_LILLY_AND_COMPANY-GB201309009000

PATIENT
  Sex: Male

DRUGS (5)
  1. OLANZAPINE [Suspect]
     Dosage: 1 DF, UNKNOWN
  2. AMITRIPTYLINE [Interacting]
     Dosage: 50 MG, EACH EVENING
     Route: 048
  3. DIAZEPAM [Interacting]
     Dosage: 5 MG, UNKNOWN
  4. MORPHINE SULFATE [Interacting]
     Dosage: 30 MG, BID
  5. VENLAFAXINE [Concomitant]
     Dosage: 1 DF, UNKNOWN

REACTIONS (2)
  - Toxicity to various agents [Fatal]
  - Drug interaction [Not Recovered/Not Resolved]
